FAERS Safety Report 25653934 (Version 1)
Quarter: 2025Q3

REPORT INFORMATION
  Report Type: Spontaneous
  Country: CA (occurrence: CA)
  Receive Date: 20250807
  Receipt Date: 20250807
  Transmission Date: 20251021
  Serious: Yes (Death, Other)
  Sender: BAYER HEALTHCARE PHARMACEUTICALS INC.
  Company Number: CA-BAYER-2025A100692

PATIENT
  Age: 31 Year
  Sex: Male

DRUGS (6)
  1. STIVARGA [Suspect]
     Active Substance: REGORAFENIB MONOHYDRATE
     Indication: Rhabdomyosarcoma
     Dosage: 160 MG, QD
     Route: 048
  2. DOXORUBICIN HYDROCHLORIDE [Suspect]
     Active Substance: DOXORUBICIN HYDROCHLORIDE
     Indication: Osteosarcoma
  3. IFOSFAMIDE [Suspect]
     Active Substance: IFOSFAMIDE
     Indication: Rhabdomyosarcoma
  4. CISPLATIN [Suspect]
     Active Substance: CISPLATIN
     Indication: Osteosarcoma
  5. ETOPOSIDE [Suspect]
     Active Substance: ETOPOSIDE
     Indication: Rhabdomyosarcoma
  6. ALECTINIB [Suspect]
     Active Substance: ALECTINIB
     Indication: Rhabdomyosarcoma
     Route: 048

REACTIONS (7)
  - Malignant neoplasm progression [Fatal]
  - Metastases to salivary gland [Fatal]
  - Metastases to lung [Fatal]
  - Osteosarcoma recurrent [Fatal]
  - Drug ineffective for unapproved indication [Fatal]
  - Mucosal inflammation [Fatal]
  - Toxicity to various agents [Fatal]
